FAERS Safety Report 20185484 (Version 3)
Quarter: 2022Q1

REPORT INFORMATION
  Report Type: Report from Study
  Country: IT (occurrence: IT)
  Receive Date: 20211215
  Receipt Date: 20220105
  Transmission Date: 20220423
  Serious: Yes (Other)
  Sender: FDA-Public Use
  Company Number: None

PATIENT
  Age: 40 Year
  Sex: Male

DRUGS (1)
  1. AMOXICILLIN [Suspect]
     Active Substance: AMOXICILLIN
     Indication: Influenza
     Dosage: 2GRAM,ADDITIONAL INFORMATION:ABUSE / MISUSE
     Route: 048
     Dates: start: 20211023, end: 20211023

REACTIONS (6)
  - Face oedema [Recovering/Resolving]
  - Palatal swelling [Recovering/Resolving]
  - Intentional product misuse [Recovering/Resolving]
  - Aphthous ulcer [Recovering/Resolving]
  - Pharyngeal erythema [Recovering/Resolving]
  - Hypersensitivity [Recovering/Resolving]

NARRATIVE: CASE EVENT DATE: 20211024
